FAERS Safety Report 8385721-0 (Version None)
Quarter: 2012Q2

REPORT INFORMATION
  Report Type: 
  Country: None (occurrence: None)
  Receive Date: 20120523
  Receipt Date: 20120523
  Transmission Date: 20120825
  Serious: No
  Sender: FDA-Public Use
  Company Number: None

PATIENT
  Sex: Female

DRUGS (1)
  1. TARGRETIN [Suspect]
     Dosage: 75MG BID ORAL
     Route: 048
     Dates: start: 20120401, end: 20120508

REACTIONS (3)
  - BLOOD URINE PRESENT [None]
  - DECREASED APPETITE [None]
  - ABDOMINAL PAIN LOWER [None]
